FAERS Safety Report 20419921 (Version 1)
Quarter: 2022Q1

REPORT INFORMATION
  Report Type: Report from Study
  Country: US (occurrence: US)
  Receive Date: 20220203
  Receipt Date: 20220203
  Transmission Date: 20220424
  Serious: Yes (Death, Hospitalization, Other)
  Sender: FDA-Public Use
  Company Number: US-TORRENT-00011610

PATIENT
  Age: 53 Year
  Sex: Female

DRUGS (2)
  1. ALCOHOL [Suspect]
     Active Substance: ALCOHOL
     Indication: Product used for unknown indication
     Dosage: UNKNOWN
     Route: 048
  2. AMLODIPINE\HYDROCHLOROTHIAZIDE\OLMESARTAN [Suspect]
     Active Substance: AMLODIPINE\HYDROCHLOROTHIAZIDE\OLMESARTAN
     Indication: Product used for unknown indication
     Dosage: UNKNOWN
     Route: 048

REACTIONS (7)
  - Toxicity to various agents [Fatal]
  - Completed suicide [Fatal]
  - Pulseless electrical activity [Unknown]
  - Hypothermia [Unknown]
  - Acidosis [Unknown]
  - Hypotension [Unknown]
  - Unresponsive to stimuli [Unknown]
